FAERS Safety Report 15102352 (Version 7)
Quarter: 2019Q2

REPORT INFORMATION
  Report Type: Spontaneous
  Country: US (occurrence: US)
  Receive Date: 20180703
  Receipt Date: 20190611
  Transmission Date: 20190711
  Serious: Yes (Hospitalization, Other)
  Sender: FDA-Public Use
  Company Number: US-SA-2018SA175747

PATIENT
  Age: 40 Year
  Sex: Male
  Weight: 65.8 kg

DRUGS (21)
  1. FABRAZYME [Suspect]
     Active Substance: AGALSIDASE BETA
     Indication: LIPIDOSIS
     Dosage: 0.911 MG/KG, QOW
     Route: 041
     Dates: start: 20101007
  2. NICODERM CQ [Concomitant]
     Active Substance: NICOTINE
     Dosage: 1 PATCH, QD
     Route: 061
     Dates: start: 20170515
  3. SODIUM CHLORIDE. [Concomitant]
     Active Substance: SODIUM CHLORIDE
     Dosage: 0.9 %,
     Route: 042
     Dates: start: 20170608
  4. NORMAL SALINE [Concomitant]
     Active Substance: SODIUM CHLORIDE
     Dosage: 0.9%, UNK
     Route: 042
     Dates: start: 20170608
  5. FLUBLOK QUADRIVALENT [Concomitant]
     Dosage: 1 DF, 1X
     Route: 030
     Dates: start: 20181101
  6. CYCLOBENZAPRINE. [Concomitant]
     Active Substance: CYCLOBENZAPRINE
     Dosage: 1 TABLET, TID
     Route: 048
     Dates: start: 20180525
  7. ACETAMINOPHEN. [Concomitant]
     Active Substance: ACETAMINOPHEN
     Indication: PREMEDICATION
     Dosage: 1000 UNK
     Route: 048
     Dates: start: 20120508
  8. HYDROCORTISONE. [Concomitant]
     Active Substance: HYDROCORTISONE
     Indication: ANAPHYLACTIC REACTION
     Dosage: 100 MG, PRN
     Route: 042
     Dates: start: 20180705
  9. STERILE WATER [Concomitant]
     Active Substance: WATER
     Dosage: 10 ML, UNK
     Route: 042
     Dates: start: 20170608
  10. SOLU-CORTEF [Concomitant]
     Active Substance: HYDROCORTISONE SODIUM SUCCINATE
     Indication: ANAPHYLACTIC REACTION
     Dosage: 100 MG, UNK
     Route: 042
     Dates: start: 20170608
  11. FABRAZYME [Suspect]
     Active Substance: AGALSIDASE BETA
     Indication: FABRY^S DISEASE
  12. PANTOPRAZOLE [Concomitant]
     Active Substance: PANTOPRAZOLE
     Dosage: 1 DF, QD
     Route: 048
     Dates: start: 20190430
  13. TYLENOL [Concomitant]
     Active Substance: ACETAMINOPHEN
     Dosage: 650 MG, PRN
     Route: 048
     Dates: start: 20120508
  14. LIDOCAINE. [Concomitant]
     Active Substance: LIDOCAINE
     Indication: PREMEDICATION
     Dosage: 4 %
     Route: 061
     Dates: start: 20180705
  15. EPINEPHRINE. [Concomitant]
     Active Substance: EPINEPHRINE
     Indication: ANAPHYLACTIC REACTION
     Dosage: 0.3 MG, UNK
     Route: 030
     Dates: start: 20170608
  16. EPINEPHRINE. [Concomitant]
     Active Substance: EPINEPHRINE
     Dosage: 0.3 MG, PRN
     Route: 030
     Dates: start: 20180705
  17. TEGRETOL [Concomitant]
     Active Substance: CARBAMAZEPINE
     Dosage: 1000 MG, QD
     Route: 048
     Dates: start: 20160520
  18. DIPHENHYDRAMINE. [Concomitant]
     Active Substance: DIPHENHYDRAMINE
     Indication: PREMEDICATION
     Dosage: 50 MG, UNK
     Route: 048
     Dates: start: 20140708
  19. ACETAMINOPHEN. [Concomitant]
     Active Substance: ACETAMINOPHEN
     Dosage: 1000 MG, UNK
     Route: 048
     Dates: start: 20140708
  20. LMX [AMOXICILLIN TRIHYDRATE;BACILLUS COAGULANS] [Concomitant]
     Indication: PREMEDICATION
     Dosage: 4 %, UNK
     Route: 061
     Dates: start: 20170608
  21. TEGRETOL [Concomitant]
     Active Substance: CARBAMAZEPINE
     Dosage: 800 UNK
     Route: 048
     Dates: start: 20190530

REACTIONS (4)
  - Atrial fibrillation [Unknown]
  - Drug level increased [Unknown]
  - Muscle spasms [Unknown]
  - Chest pain [Unknown]

NARRATIVE: CASE EVENT DATE: 20180510
